FAERS Safety Report 6154562-7 (Version None)
Quarter: 2009Q2

REPORT INFORMATION
  Report Type: 
  Country: None (occurrence: None)
  Receive Date: 20090414
  Receipt Date: 20090408
  Transmission Date: 20091009
  Serious: Yes (Other)
  Sender: FDA-Public Use
  Company Number: US-ASTRAZENECA-2009UW09108

PATIENT
  Age: 44 Year
  Sex: Female

DRUGS (1)
  1. SEROQUEL [Suspect]
     Indication: DEPRESSION
     Dosage: 300 TO 400 MG
     Route: 048
     Dates: start: 20040701, end: 20050101

REACTIONS (1)
  - NEUROPATHY PERIPHERAL [None]
